FAERS Safety Report 9365131 (Version 1)
Quarter: 2013Q2

REPORT INFORMATION
  Report Type: Spontaneous
  Country: GB (occurrence: GB)
  Receive Date: 20130624
  Receipt Date: 20130624
  Transmission Date: 20140414
  Serious: Yes (Hospitalization, Other)
  Sender: FDA-Public Use
  Company Number: PHHY2013GB061739

PATIENT
  Sex: Female

DRUGS (7)
  1. TEMAZEPAM [Suspect]
     Dosage: 10 MG, OCCASIONAL
     Route: 065
     Dates: end: 201207
  2. PROMAZINE [Suspect]
     Indication: SLEEP DISORDER
     Dosage: 75 MG, QD, 25MG X 3 TABLETS NIGHTLY
     Route: 065
     Dates: start: 1991
  3. THYROXINE [Suspect]
     Indication: HYPOTHYROIDISM
     Dosage: 50 UG, UNK
     Dates: start: 2002
  4. NARDIL [Interacting]
     Indication: DEPRESSION
     Dosage: 45 MILLIGRAM DAILY;
     Route: 065
     Dates: start: 1988
  5. BETA 2 BLOCKERS [Interacting]
     Indication: LOWER RESPIRATORY TRACT INFECTION
     Route: 065
     Dates: start: 2010
  6. NUROFEN [Suspect]
     Indication: BURSITIS
     Route: 065
  7. CETIRIZINE [Concomitant]
     Indication: PRURITUS GENERALISED
     Route: 065
     Dates: start: 2010, end: 2012

REACTIONS (14)
  - Urinary tract infection [Unknown]
  - C-reactive protein increased [Unknown]
  - Sepsis [Unknown]
  - Lower respiratory tract infection [Unknown]
  - Hypertension [Unknown]
  - Jessner^s lymphocytic infiltration [Unknown]
  - Pruritus generalised [Recovered/Resolved]
  - Hyperhidrosis [Recovered/Resolved]
  - Antiphospholipid antibodies positive [Unknown]
  - Bursitis [Unknown]
  - Blood urea increased [Not Recovered/Not Resolved]
  - Glomerular filtration rate decreased [Not Recovered/Not Resolved]
  - Insomnia [Unknown]
  - Nodule [Unknown]
